FAERS Safety Report 19134827 (Version 1)
Quarter: 2021Q2

REPORT INFORMATION
  Report Type: Spontaneous
  Country: US (occurrence: US)
  Receive Date: 20210414
  Receipt Date: 20210414
  Transmission Date: 20210717
  Serious: No
  Sender: FDA-Public Use
  Company Number: US-TEVA-2021-US-1897839

PATIENT
  Age: 44 Year
  Sex: Female

DRUGS (4)
  1. VITAMIN C [Concomitant]
     Active Substance: ASCORBIC ACID
  2. LIDOCAINE. [Suspect]
     Active Substance: LIDOCAINE
     Indication: BACK PAIN
     Route: 065
  3. ALEVE [Concomitant]
     Active Substance: NAPROXEN SODIUM
  4. ZINC. [Concomitant]
     Active Substance: ZINC

REACTIONS (1)
  - Drug ineffective [Unknown]
